FAERS Safety Report 10163475 (Version 1)
Quarter: 2014Q2

REPORT INFORMATION
  Report Type: Spontaneous
  Country: US (occurrence: US)
  Receive Date: 20140509
  Receipt Date: 20140509
  Transmission Date: 20141212
  Serious: Yes (Life-Threatening, Hospitalization, Other)
  Sender: FDA-Public Use
  Company Number: US-ELI_LILLY_AND_COMPANY-US201405001029

PATIENT
  Sex: Female

DRUGS (1)
  1. EFFIENT [Suspect]
     Indication: PRODUCT USED FOR UNKNOWN INDICATION
     Dosage: UNK
     Route: 065

REACTIONS (9)
  - Cardiac arrest [Unknown]
  - Arterial occlusive disease [Unknown]
  - Pericardial effusion [Unknown]
  - Pleural effusion [Unknown]
  - Myocardial infarction [Unknown]
  - Arrhythmia [Unknown]
  - Mental disorder [Unknown]
  - Depression [Unknown]
  - Asthenia [Unknown]
